FAERS Safety Report 23640527 (Version 2)
Quarter: 2024Q1

REPORT INFORMATION
  Report Type: Report from Study
  Country: GB (occurrence: GB)
  Receive Date: 20240318
  Receipt Date: 20240328
  Transmission Date: 20240410
  Serious: Yes (Hospitalization)
  Sender: FDA-Public Use
  Company Number: GB-ABBVIE-5671103

PATIENT
  Age: 36 Year
  Sex: Female

DRUGS (1)
  1. BOTOX [Suspect]
     Active Substance: ONABOTULINUMTOXINA
     Indication: Migraine
     Dosage: TIME INTERVAL: AS NECESSARY
     Route: 065
     Dates: start: 2019, end: 2019

REACTIONS (17)
  - Increased upper airway secretion [Unknown]
  - Muscle disorder [Unknown]
  - Fear [Unknown]
  - Dizziness [Unknown]
  - Paralysis [Unknown]
  - Dysphagia [Unknown]
  - Dysarthria [Unknown]
  - Eyelid ptosis [Unknown]
  - Apnoea [Unknown]
  - Vision blurred [Unknown]
  - Speech disorder [Unknown]
  - Posture abnormal [Unknown]
  - Choking [Unknown]
  - Increased bronchial secretion [Unknown]
  - Dysphonia [Unknown]
  - Ocular discomfort [Unknown]
  - Musculoskeletal stiffness [Not Recovered/Not Resolved]
